FAERS Safety Report 9980704 (Version 1)
Quarter: 2014Q1

REPORT INFORMATION
  Report Type: Spontaneous
  Country: US (occurrence: None)
  Receive Date: 20140305
  Receipt Date: 20140305
  Transmission Date: 20141002
  Serious: Yes (Hospitalization)
  Sender: FDA-Public Use
  Company Number: None

PATIENT
  Age: 25 Year
  Sex: Male
  Weight: 72 kg

DRUGS (2)
  1. SUCCINYLCHOLINE [Suspect]
     Indication: ENDOTRACHEAL INTUBATION
     Dates: start: 20140201, end: 20140201
  2. ETOMIDATE [Concomitant]

REACTIONS (2)
  - Ventricular tachycardia [None]
  - Cardio-respiratory arrest [None]
